FAERS Safety Report 24071319 (Version 1)
Quarter: 2024Q3

REPORT INFORMATION
  Report Type: Spontaneous
  Country: CN (occurrence: CN)
  Receive Date: 20240710
  Receipt Date: 20240710
  Transmission Date: 20241017
  Serious: Yes (Other)
  Sender: OCTAPHARMA
  Company Number: CN-OCTA-ALB10524

PATIENT
  Sex: Male
  Weight: 71 kg

DRUGS (1)
  1. ALBUMIN HUMAN [Suspect]
     Active Substance: ALBUMIN HUMAN
     Indication: Hypoalbuminaemia
     Dosage: MASKED
     Route: 041
     Dates: start: 20240616, end: 20240617

REACTIONS (1)
  - Macule [Recovered/Resolved]

NARRATIVE: CASE EVENT DATE: 20240617
